FAERS Safety Report 17852959 (Version 1)
Quarter: 2020Q2

REPORT INFORMATION
  Report Type: Spontaneous
  Country: BR (occurrence: BR)
  Receive Date: 20200603
  Receipt Date: 20200603
  Transmission Date: 20200714
  Serious: Yes (Other)
  Sender: FDA-Public Use
  Company Number: BR-ABBVIE-18P-020-2231279-00

PATIENT
  Sex: Male

DRUGS (8)
  1. DEPAKOTE [Suspect]
     Active Substance: DIVALPROEX SODIUM
     Indication: ANGELMAN^S SYNDROME
  2. KEPPRA [Concomitant]
     Active Substance: LEVETIRACETAM
     Indication: EPILEPSY
     Dosage: 6 TABLETS; IN THE MORNING/AT NIGHT
     Route: 048
     Dates: start: 201612
  3. TOPAMAX [Concomitant]
     Active Substance: TOPIRAMATE
     Indication: EPILEPSY
     Dosage: 1 TABLET; AT NIGHT
     Route: 048
  4. DEPAKOTE [Suspect]
     Active Substance: DIVALPROEX SODIUM
     Indication: PETIT MAL EPILEPSY
     Dosage: 6 CAPSULES; IN THE MORNING/AT NIGHT
     Route: 048
     Dates: start: 2005
  5. DEPAKOTE [Suspect]
     Active Substance: DIVALPROEX SODIUM
     Indication: GENERALISED TONIC-CLONIC SEIZURE
     Dosage: 3 CAPSULES IN THE MORNING AND 4 AT NIGHT WHEN HAS ABSENCE SEIZURES, THEN DOSE RETURNS TO
     Route: 048
  6. DEPAKOTE ER [Suspect]
     Active Substance: DIVALPROEX SODIUM
     Indication: PETIT MAL EPILEPSY
     Dosage: USED WHEN PATIENT WAS ADULT
     Route: 048
  7. DEPAKOTE [Suspect]
     Active Substance: DIVALPROEX SODIUM
     Indication: PETIT MAL EPILEPSY
     Dosage: FIRST ABBOTT DRUG USED BY PATIENT, DUE TO VOMIT, CHANGED TO DEPAKOTE SPRINKLE
     Route: 048
  8. SONEBON [Concomitant]
     Indication: ANXIOLYTIC THERAPY
     Dosage: 3 TABLETS; 1 TABLET IN THE MORNING / 2 TABLETS AT NIGHT
     Route: 048

REACTIONS (11)
  - Vomiting [Unknown]
  - Petit mal epilepsy [Unknown]
  - Insomnia [Unknown]
  - Abnormal behaviour [Recovered/Resolved]
  - Hypokinesia [Recovered/Resolved]
  - Somnolence [Recovered/Resolved]
  - Petit mal epilepsy [Recovered/Resolved]
  - Recalled product administered [Unknown]
  - Insomnia [Recovered/Resolved]
  - Angelman^s syndrome [Unknown]
  - Somnolence [Unknown]

NARRATIVE: CASE EVENT DATE: 201712
